FAERS Safety Report 4576541-3 (Version None)
Quarter: 2005Q1

REPORT INFORMATION
  Report Type: 
  Country: None (occurrence: None)
  Receive Date: 20050119
  Receipt Date: 20040317
  Transmission Date: 20050727
  Serious: Yes (Hospitalization)
  Sender: FDA-Public Use
  Company Number: A03200400837

PATIENT
  Age: 64 Year
  Sex: Male
  Weight: 61.2356 kg

DRUGS (3)
  1. PLAVIX [Suspect]
     Indication: MYOCARDIAL INFARCTION
     Dosage: ORAL; A FEW YEARS
     Route: 048
     Dates: start: 20040101
  2. PRAVASTATIN [Concomitant]
  3. LEVOTHYROXINE SODIUM [Concomitant]

REACTIONS (2)
  - HAEMOPTYSIS [None]
  - NASOPHARYNGITIS [None]
